FAERS Safety Report 17233607 (Version 2)
Quarter: 2020Q1

REPORT INFORMATION
  Report Type: Spontaneous
  Country: US (occurrence: US)
  Receive Date: 20200105
  Receipt Date: 20200323
  Transmission Date: 20200409
  Serious: Yes (Other)
  Sender: FDA-Public Use
  Company Number: US-BEH-2019111195

PATIENT
  Sex: Male

DRUGS (4)
  1. HUMATE-P [Suspect]
     Active Substance: HUMAN COAGULATION FACTOR VIII/VON WILLEBRAND FACTOR COMPLEX
     Indication: VON WILLEBRAND^S DISEASE
     Dosage: 2940 INTERNATIONAL UNIT, QD
     Route: 042
     Dates: start: 201911
  2. HUMATE-P [Suspect]
     Active Substance: HUMAN COAGULATION FACTOR VIII/VON WILLEBRAND FACTOR COMPLEX
     Dosage: 2684 INTERNATIONAL UNIT, QD
     Route: 042
     Dates: start: 20191119
  3. HUMATE-P [Suspect]
     Active Substance: HUMAN COAGULATION FACTOR VIII/VON WILLEBRAND FACTOR COMPLEX
     Dosage: 2684 INTERNATIONAL UNIT, QD
     Route: 042
     Dates: start: 20191119
  4. HUMATE-P [Suspect]
     Active Substance: HUMAN COAGULATION FACTOR VIII/VON WILLEBRAND FACTOR COMPLEX
     Indication: VON WILLEBRAND^S DISEASE
     Dosage: 2940 INTERNATIONAL UNIT, QD
     Route: 042
     Dates: start: 201911

REACTIONS (3)
  - Faeces discoloured [Recovered/Resolved]
  - Melaena [Unknown]
  - Gastrointestinal haemorrhage [Unknown]
